FAERS Safety Report 6387202-2 (Version None)
Quarter: 2009Q4

REPORT INFORMATION
  Report Type: 
  Country: None (occurrence: None)
  Receive Date: 20091002
  Receipt Date: 20091001
  Transmission Date: 20100525
  Serious: Yes (Hospitalization)
  Sender: FDA-Public Use
  Company Number: US-GENENTECH-290191

PATIENT
  Sex: Male

DRUGS (2)
  1. BEVACIZUMAB [Suspect]
     Indication: NEUROBLASTOMA
     Dosage: UNK
     Dates: start: 20090806, end: 20090820
  2. I-131 3F8 [Suspect]
     Indication: NEUROBLASTOMA
     Dosage: UNK
     Dates: start: 20090521

REACTIONS (1)
  - FEBRILE NEUTROPENIA [None]
